FAERS Safety Report 9915334 (Version 1)
Quarter: 2014Q1

REPORT INFORMATION
  Report Type: Report from Study
  Country: US (occurrence: US)
  Receive Date: 20140221
  Receipt Date: 20140221
  Transmission Date: 20141002
  Serious: Yes (Hospitalization, Other)
  Sender: FDA-Public Use
  Company Number: US-ROCHE-1277467

PATIENT
  Age: 83 Year
  Sex: Male

DRUGS (6)
  1. AVASTIN [Suspect]
     Indication: RETINAL VEIN OCCLUSION
     Route: 065
  2. AVASTIN [Suspect]
     Indication: OFF LABEL USE
  3. LIPITOR [Concomitant]
  4. PLAVIX [Concomitant]
     Route: 065
  5. SYSTANE [Concomitant]
     Route: 047
  6. XALATAN [Concomitant]
     Route: 047

REACTIONS (2)
  - Myocardial infarction [Unknown]
  - Cystoid macular oedema [Unknown]
